FAERS Safety Report 17928194 (Version 1)
Quarter: 2020Q2

REPORT INFORMATION
  Report Type: Spontaneous
  Country: US (occurrence: US)
  Receive Date: 20200623
  Receipt Date: 20200623
  Transmission Date: 20200714
  Serious: No
  Sender: FDA-Public Use
  Company Number: US-ASTRAZENECA-2020SE78487

PATIENT
  Sex: Male
  Weight: 145.2 kg

DRUGS (1)
  1. BYDUREON BCISE [Suspect]
     Active Substance: EXENATIDE
     Indication: DIABETES MELLITUS
     Route: 058

REACTIONS (4)
  - Injection site injury [Recovered/Resolved]
  - Injection site indentation [Recovered/Resolved]
  - Intentional device misuse [Unknown]
  - Device delivery system issue [Unknown]
